FAERS Safety Report 17121765 (Version 1)
Quarter: 2019Q4

REPORT INFORMATION
  Report Type: Spontaneous
  Country: ES (occurrence: ES)
  Receive Date: 20191206
  Receipt Date: 20191206
  Transmission Date: 20200122
  Serious: Yes (Hospitalization, Other)
  Sender: FDA-Public Use
  Company Number: NVSC2019ES051268

PATIENT
  Age: 72 Year
  Sex: Female

DRUGS (3)
  1. ETANERCEPT [Suspect]
     Active Substance: ETANERCEPT
     Dosage: UNK
     Route: 065
  2. ETANERCEPT [Suspect]
     Active Substance: ETANERCEPT
     Indication: PSORIATIC ARTHROPATHY
     Dosage: UNK
     Route: 065
  3. METHOTREXATE SODIUM. [Suspect]
     Active Substance: METHOTREXATE SODIUM
     Indication: PSORIATIC ARTHROPATHY
     Dosage: 20 MG, QW
     Route: 065

REACTIONS (4)
  - Pancytopenia [Not Recovered/Not Resolved]
  - Visceral leishmaniasis [Recovered/Resolved]
  - Inflammation [Not Recovered/Not Resolved]
  - Hypergammaglobulinaemia [Unknown]

NARRATIVE: CASE EVENT DATE: 201007
